FAERS Safety Report 17009662 (Version 1)
Quarter: 2019Q4

REPORT INFORMATION
  Report Type: Spontaneous
  Country: US (occurrence: US)
  Receive Date: 20190930
  Receipt Date: 20190930
  Transmission Date: 20200122
  Serious: No
  Sender: FDA-Public Use
  Company Number: None

PATIENT
  Age: 66 Year
  Sex: Male

DRUGS (1)
  1. BOSENTAN 125 MG TABLETS 60/BO (TEVA): [Suspect]
     Active Substance: BOSENTAN
     Indication: PULMONARY ARTERIAL HYPERTENSION
     Route: 048
     Dates: start: 20141114

REACTIONS (2)
  - Cardioversion [None]
  - Heart rate increased [None]

NARRATIVE: CASE EVENT DATE: 20190915
